FAERS Safety Report 5065124-7 (Version None)
Quarter: 2006Q3

REPORT INFORMATION
  Report Type: 
  Country: None (occurrence: None)
  Receive Date: 20060727
  Receipt Date: 20060727
  Transmission Date: 20061208
  Serious: Yes (Hospitalization)
  Sender: FDA-Public Use
  Company Number: None

PATIENT
  Age: 41 Year
  Sex: Male
  Weight: 97.0698 kg

DRUGS (15)
  1. VANCOMYCIN [Suspect]
     Indication: STAPHYLOCOCCAL INFECTION
     Dosage: IV 1 G BID
     Dates: start: 20060205, end: 20060304
  2. ASPIRIN [Concomitant]
  3. POTASSIUM CHLORIDE [Concomitant]
  4. LASIX [Concomitant]
  5. SPIRONOLACTONE [Concomitant]
  6. LISINOPRIL [Concomitant]
  7. FLONASE [Concomitant]
  8. ADVAIR DISKUS 100/50 [Concomitant]
  9. ALBUTEROL SPIROS [Concomitant]
  10. COUMADIN [Concomitant]
  11. TOPROL-XL [Concomitant]
  12. CLARINEX [Concomitant]
  13. SINGULAIR [Concomitant]
  14. SONATA [Concomitant]
  15. VANCOMYCIN [Concomitant]

REACTIONS (4)
  - HYPOTENSION [None]
  - PYREXIA [None]
  - RASH [None]
  - SKIN LESION [None]
